FAERS Safety Report 5491615-0 (Version None)
Quarter: 2007Q4

REPORT INFORMATION
  Report Type: 
  Country: None (occurrence: None)
  Receive Date: 20071019
  Receipt Date: 20071019
  Transmission Date: 20080405
  Serious: Yes (Other)
  Sender: FDA-Public Use
  Company Number: None

PATIENT
  Age: 19 Year
  Sex: Male

DRUGS (2)
  1. DOXYCYCLINE [Suspect]
     Dates: end: 20061206
  2. ELDERBERRY [Concomitant]

REACTIONS (9)
  - ANTINUCLEAR ANTIBODY POSITIVE [None]
  - AUTOANTIBODY POSITIVE [None]
  - AUTOIMMUNE HEPATITIS [None]
  - BLOOD IMMUNOGLOBULIN G INCREASED [None]
  - CHOLESTASIS [None]
  - HEPATIC FIBROSIS [None]
  - HEPATITIS [None]
  - IMMUNOGLOBULINS INCREASED [None]
  - LIVER INJURY [None]
